FAERS Safety Report 19835472 (Version 1)
Quarter: 2021Q3

REPORT INFORMATION
  Report Type: Spontaneous
  Country: FI (occurrence: FI)
  Receive Date: 20210915
  Receipt Date: 20210915
  Transmission Date: 20211014
  Serious: Yes (Other)
  Sender: FDA-Public Use
  Company Number: FI-ACCORD-238482

PATIENT
  Age: 59 Year
  Sex: Female

DRUGS (4)
  1. KRKA [Concomitant]
     Indication: HYPERTENSION
     Dosage: 1,DF,DAILY
     Route: 048
  2. RATIOPHARM [Concomitant]
     Active Substance: DEXTROMETHORPHAN HYDROBROMIDE
     Indication: HYPERTENSION
     Dosage: DAILY
     Route: 048
  3. LIPANTHYL PENTA [Concomitant]
     Active Substance: FENOFIBRATE
     Indication: LIPIDS ABNORMAL
     Dosage: 145 MG, DAILY
     Route: 048
  4. ROSUVASTATIN. [Suspect]
     Active Substance: ROSUVASTATIN
     Indication: BLOOD CHOLESTEROL ABNORMAL
     Dosage: 5 MG, DAILY
     Route: 048
     Dates: start: 20210603, end: 20210720

REACTIONS (4)
  - Fear [Not Recovered/Not Resolved]
  - Self-injurious ideation [Not Recovered/Not Resolved]
  - Depressive symptom [Not Recovered/Not Resolved]
  - Anxiety [Not Recovered/Not Resolved]

NARRATIVE: CASE EVENT DATE: 202107
